FAERS Safety Report 11333596 (Version 1)
Quarter: 2015Q3

REPORT INFORMATION
  Report Type: Spontaneous
  Country: US (occurrence: US)
  Receive Date: 20150803
  Receipt Date: 20150803
  Transmission Date: 20151125
  Serious: Yes (Hospitalization)
  Sender: FDA-Public Use
  Company Number: US-ELI_LILLY_AND_COMPANY-US200802004927

PATIENT
  Sex: Male
  Weight: 102.4 kg

DRUGS (1)
  1. ZYPREXA [Suspect]
     Active Substance: OLANZAPINE
     Dates: start: 2000

REACTIONS (4)
  - Diabetic coma [Unknown]
  - Blood glucose abnormal [Unknown]
  - Diabetes mellitus [Unknown]
  - Endocrine disorder [Unknown]
